FAERS Safety Report 7237227-X (Version None)
Quarter: 2011Q1

REPORT INFORMATION
  Report Type: 
  Country: None (occurrence: None)
  Receive Date: 20110110
  Receipt Date: 20110103
  Transmission Date: 20110831
  Serious: Yes (Death, Other)
  Sender: FDA-Public Use
  Company Number: 2009AL004499

PATIENT
  Age: 33 Year
  Sex: Female

DRUGS (8)
  1. VALPROID ACID [Concomitant]
  2. VENLAFAXINE HYDROCHLORIDE [Suspect]
     Dosage: 225 MG; QD; PO
     Route: 048
     Dates: start: 20050101
  3. EFFEXOR [Suspect]
     Dosage: 225 MG; QD
  4. EFFEXOR [Suspect]
     Indication: DEPRESSION
     Dosage: 150 MG; QD; PO
     Route: 048
     Dates: start: 20040101
  5. CLOZARIL [Suspect]
     Indication: SCHIZOPHRENIA
     Dosage: PO
     Route: 048
     Dates: start: 20050819, end: 20090501
  6. CLOZARIL [Suspect]
     Indication: SCHIZOPHRENIA
     Dosage: 650 MG
     Dates: start: 20090501
  7. ATENOLOL [Concomitant]
  8. CARBAMAZEPINE [Concomitant]

REACTIONS (5)
  - TOXICITY TO VARIOUS AGENTS [None]
  - DRUG INTERACTION [None]
  - CONVULSION [None]
  - OVERDOSE [None]
  - SYNCOPE [None]
